FAERS Safety Report 14935165 (Version 1)
Quarter: 2018Q2

REPORT INFORMATION
  Report Type: Report from Study
  Country: IT (occurrence: IT)
  Receive Date: 20180524
  Receipt Date: 20180524
  Transmission Date: 20180711
  Serious: Yes (Other)
  Sender: FDA-Public Use
  Company Number: IT-ASTRAZENECA-2018SE65414

PATIENT
  Age: 27115 Day
  Sex: Female

DRUGS (10)
  1. AVASTIN [Suspect]
     Active Substance: BEVACIZUMAB
     Indication: OVARIAN CANCER
     Dosage: 15 MG/KG, DAY 1, EVERY 3 WEEKS, FOR A TOTAL DURATION OF 15 MONTHS / 22 CYCLES
     Route: 042
     Dates: start: 20170719
  2. NEURABEN [Concomitant]
     Active Substance: CYANOCOBALAMIN\PYRIDOXINE\THIAMINE
  3. OLAPARIB. [Suspect]
     Active Substance: OLAPARIB
     Indication: OVARIAN CANCER
     Route: 048
     Dates: start: 20170719, end: 20171020
  4. SIDERAL FORTE [Concomitant]
     Active Substance: ASCORBIC ACID\FERRIC PYROPHOSPHATE
  5. COMBISARTAN [Concomitant]
     Active Substance: HYDROCHLOROTHIAZIDE\VALSARTAN
     Dosage: 160/12.5MG
  6. LYRICA [Concomitant]
     Active Substance: PREGABALIN
  7. OMEPRAZOLO [Concomitant]
     Active Substance: OMEPRAZOLE
  8. AMLODIPINA [Concomitant]
     Active Substance: AMLODIPINE BESYLATE
  9. TOTALIP [Concomitant]
     Active Substance: ATORVASTATIN
  10. LOBIVON [Concomitant]
     Active Substance: NEBIVOLOL HYDROCHLORIDE

REACTIONS (1)
  - Interstitial lung disease [Not Recovered/Not Resolved]

NARRATIVE: CASE EVENT DATE: 20171026
